FAERS Safety Report 4854343-8 (Version None)
Quarter: 2005Q4

REPORT INFORMATION
  Report Type: 
  Country: None (occurrence: None)
  Receive Date: 20051214
  Receipt Date: 20051214
  Transmission Date: 20060501
  Serious: No
  Sender: FDA-Public Use
  Company Number: None

PATIENT
  Age: 54 Year
  Sex: Male
  Weight: 85.3 kg

DRUGS (1)
  1. TRAVAPROST [Suspect]
     Indication: HYPERLIPIDAEMIA
     Dosage: 0.004% Q HS 1GTT 05
     Dates: start: 20050308, end: 20050722

REACTIONS (1)
  - CONJUNCTIVITIS [None]
